FAERS Safety Report 8027765-4 (Version None)
Quarter: 2012Q1

REPORT INFORMATION
  Report Type: 
  Country: None (occurrence: None)
  Receive Date: 20120106
  Receipt Date: 20120106
  Transmission Date: 20120608
  Serious: Yes (Life-Threatening, Hospitalization)
  Sender: FDA-Public Use
  Company Number: None

PATIENT
  Age: 50 Year
  Sex: Female
  Weight: 131.54 kg

DRUGS (1)
  1. WARFARIN SODIUM [Suspect]
     Indication: ATRIAL FIBRILLATION
     Dosage: 7.5 MG
     Route: 048

REACTIONS (5)
  - EPISTAXIS [None]
  - UNRESPONSIVE TO STIMULI [None]
  - COAGULOPATHY [None]
  - ANAEMIA [None]
  - SUBDURAL HAEMATOMA [None]
